FAERS Safety Report 7523899-9 (Version None)
Quarter: 2011Q2

REPORT INFORMATION
  Report Type: 
  Country: None (occurrence: None)
  Receive Date: 20110603
  Receipt Date: 20110527
  Transmission Date: 20111010
  Serious: Yes (Hospitalization, Other)
  Sender: FDA-Public Use
  Company Number: JP-MERCK-1105USA03115

PATIENT
  Age: 76 Year
  Sex: Female
  Weight: 58 kg

DRUGS (12)
  1. VITANEURIN (FURSULTIAMINE (+) HYDROXOCOBALAMIN ACETATE (+) PYRIDOXAL P [Concomitant]
     Route: 048
  2. JUVELA [Concomitant]
     Route: 048
  3. AZULFIDINE [Concomitant]
     Route: 048
  4. BUFFERIN [Concomitant]
     Route: 048
  5. SELTEPNON [Concomitant]
     Route: 048
  6. D-ALPHA [Concomitant]
     Route: 048
  7. FOSAMAX [Suspect]
     Indication: OSTEOPOROSIS
     Route: 048
     Dates: end: 20101201
  8. NORVASC [Concomitant]
     Route: 048
  9. VOLTAREN [Concomitant]
     Route: 048
  10. FORTEO [Concomitant]
     Route: 058
     Dates: start: 20110401
  11. PEPCID RPD [Concomitant]
     Route: 048
  12. DIOVAN [Concomitant]
     Route: 048

REACTIONS (1)
  - FEMUR FRACTURE [None]
